FAERS Safety Report 5962852-3 (Version None)
Quarter: 2008Q4

REPORT INFORMATION
  Report Type: 
  Country: None (occurrence: None)
  Receive Date: 20081124
  Receipt Date: 20081112
  Transmission Date: 20090506
  Serious: No
  Sender: FDA-Public Use
  Company Number: US-BAYER-200838549NA

PATIENT
  Age: 54 Year
  Sex: Female

DRUGS (3)
  1. AVELOX [Suspect]
     Indication: SINUSITIS
     Dosage: TOTAL DAILY DOSE: 400 MG  UNIT DOSE: 400 MG
     Dates: start: 20081029, end: 20081105
  2. AVELOX [Suspect]
     Dates: start: 20080201
  3. AVELOX [Suspect]
     Dates: start: 20080601

REACTIONS (6)
  - ARRHYTHMIA [None]
  - ARTHROPATHY [None]
  - LIVER FUNCTION TEST ABNORMAL [None]
  - PRURITUS [None]
  - PYREXIA [None]
  - RASH MACULAR [None]
